FAERS Safety Report 4677252-6 (Version None)
Quarter: 2005Q2

REPORT INFORMATION
  Report Type: 
  Country: None (occurrence: None)
  Receive Date: 20050526
  Receipt Date: 20050509
  Transmission Date: 20051028
  Serious: Yes (Hospitalization)
  Sender: FDA-Public Use
  Company Number: SGB1-2005-00213

PATIENT
  Sex: Male

DRUGS (2)
  1. MIDODRINE(MIDODRINE) TABLET [Suspect]
     Indication: ORTHOSTATIC HYPOTENSION
     Dosage: 10 MG, 3X/DAY;TID
     Dates: start: 20000801
  2. FLUDROCORTISONE ACETATE [Concomitant]

REACTIONS (2)
  - CEREBROVASCULAR ACCIDENT [None]
  - HYPERTENSION [None]
